FAERS Safety Report 13286311 (Version 1)
Quarter: 2017Q1

REPORT INFORMATION
  Report Type: Spontaneous
  Country: US (occurrence: US)
  Receive Date: 20170301
  Receipt Date: 20170301
  Transmission Date: 20170428
  Serious: Yes (Other)
  Sender: FDA-Public Use
  Company Number: PHHY2017US028810

PATIENT
  Age: 58 Year
  Sex: Male

DRUGS (16)
  1. DILTIAZEM CD [Concomitant]
     Active Substance: DILTIAZEM
     Indication: PRODUCT USED FOR UNKNOWN INDICATION
     Dosage: 120 MG, QD
     Route: 048
  2. WARFARIN [Interacting]
     Active Substance: WARFARIN
     Dosage: 7.5 MG, QW2
     Route: 065
  3. ACETAMINOPHEN. [Concomitant]
     Active Substance: ACETAMINOPHEN
     Indication: PAIN
     Dosage: 1000 MG, BID
     Route: 048
  4. MULTIVITAMIN [Concomitant]
     Active Substance: VITAMINS
     Indication: PRODUCT USED FOR UNKNOWN INDICATION
     Dosage: 1 DF, QD
     Route: 048
  5. WARFARIN [Suspect]
     Active Substance: WARFARIN
     Indication: PROPHYLAXIS
     Dosage: 5 MG, QW5
     Route: 048
     Dates: start: 2009
  6. WARFARIN [Interacting]
     Active Substance: WARFARIN
     Dosage: 55 MG, QW
     Route: 065
  7. LISINOPRIL. [Concomitant]
     Active Substance: LISINOPRIL
     Indication: PRODUCT USED FOR UNKNOWN INDICATION
     Dosage: 2.5 MG, QD
     Route: 048
  8. RIBAVIRIN. [Interacting]
     Active Substance: RIBAVIRIN
     Indication: HEPATITIS C
     Dosage: 600 MG, BID
     Route: 048
  9. NITROGLYCERIN. [Concomitant]
     Active Substance: NITROGLYCERIN
     Indication: CHEST PAIN
     Dosage: 0.4 MG, UNK
     Route: 060
  10. WARFARIN [Interacting]
     Active Substance: WARFARIN
     Dosage: 70 MG, QW
     Route: 065
  11. WARFARIN [Interacting]
     Active Substance: WARFARIN
     Dosage: 90 MG, QW
     Route: 065
  12. VIEKIRA PAK [Interacting]
     Active Substance: DASABUVIR\OMBITASVIR\PARITAPREVIR\RITONAVIR
     Indication: HEPATITIS C
     Dosage: UNK
     Route: 065
  13. WARFARIN [Interacting]
     Active Substance: WARFARIN
     Dosage: 80 MG, QW
     Route: 065
  14. WARFARIN [Interacting]
     Active Substance: WARFARIN
     Dosage: 47.5 MG, QW
     Route: 065
  15. WARFARIN [Interacting]
     Active Substance: WARFARIN
     Dosage: 75 MG, QW
     Route: 065
  16. PANTOPRAZOLE [Concomitant]
     Active Substance: PANTOPRAZOLE SODIUM
     Indication: PRODUCT USED FOR UNKNOWN INDICATION
     Dosage: 20 MG, QD
     Route: 048

REACTIONS (2)
  - Drug interaction [Unknown]
  - Anticoagulation drug level below therapeutic [Recovered/Resolved]
